FAERS Safety Report 15761940 (Version 4)
Quarter: 2019Q4

REPORT INFORMATION
  Report Type: Spontaneous
  Country: GB (occurrence: GB)
  Receive Date: 20181226
  Receipt Date: 20191113
  Transmission Date: 20200122
  Serious: Yes (Other)
  Sender: FDA-Public Use
  Company Number: GB-PFIZER INC-2018530129

PATIENT
  Age: 74 Year
  Sex: Male
  Weight: 68 kg

DRUGS (5)
  1. GLYCERYL TRINITRATE [Concomitant]
     Active Substance: NITROGLYCERIN
     Dosage: 400 UG (SPRAY)
     Route: 065
  2. BETAMETHASONE VALERATE. [Concomitant]
     Active Substance: BETAMETHASONE VALERATE
     Dosage: UNK
     Route: 065
  3. ASPIRINE [Suspect]
     Active Substance: ASPIRIN
     Indication: ANGINA PECTORIS
     Dosage: 75 MG, QD (AFTER THE FIRST MEAL OF THE DAY)
     Route: 048
     Dates: start: 20181127
  4. RAMIPRIL. [Suspect]
     Active Substance: RAMIPRIL
     Indication: ANGINA PECTORIS
     Dosage: 2.5 MG, QD (AFTER THE EVENING MEAL)
     Route: 048
     Dates: start: 20181126
  5. HYDROXOCOBALAMIN [Concomitant]
     Active Substance: HYDROXOCOBALAMIN
     Dosage: 1MG/1ML
     Route: 065

REACTIONS (1)
  - Gout [Recovering/Resolving]

NARRATIVE: CASE EVENT DATE: 20181128
